FAERS Safety Report 14853410 (Version 1)
Quarter: 2018Q2

REPORT INFORMATION
  Report Type: Spontaneous
  Country: US (occurrence: US)
  Receive Date: 20180419
  Receipt Date: 20180419
  Transmission Date: 20180711
  Serious: Yes (Hospitalization)
  Sender: FDA-Public Use
  Company Number: None

PATIENT
  Age: 37 Year
  Sex: Female

DRUGS (4)
  1. MULTIVITAMIN FOR WOMEN [Concomitant]
  2. LISINOPRIL/HCTZ [Concomitant]
     Active Substance: HYDROCHLOROTHIAZIDE\LISINOPRIL
  3. ACTEMRA [Suspect]
     Active Substance: TOCILIZUMAB
     Indication: RHEUMATOID ARTHRITIS
     Route: 058
     Dates: start: 20160106
  4. ALEVE [Concomitant]
     Active Substance: NAPROXEN SODIUM

REACTIONS (2)
  - Limb operation [None]
  - Drug dose omission [None]

NARRATIVE: CASE EVENT DATE: 20180404
